FAERS Safety Report 12196271 (Version 1)
Quarter: 2016Q1

REPORT INFORMATION
  Report Type: Spontaneous
  Country: JP (occurrence: JP)
  Receive Date: 20160321
  Receipt Date: 20160321
  Transmission Date: 20160526
  Serious: Yes (Death)
  Sender: FDA-Public Use
  Company Number: JP-TEVA-621312ISR

PATIENT
  Age: 77 Year
  Sex: Male
  Weight: 55 kg

DRUGS (16)
  1. E-FEN BUCCAL [Suspect]
     Active Substance: FENTANYL CITRATE
     Indication: BREAKTHROUGH PAIN
     Dosage: 50 MICROGRAM -200 MICROGRAM
     Route: 002
     Dates: start: 20150715, end: 20150719
  2. FENTOS [Concomitant]
     Active Substance: FENTANYL
     Dosage: 3 MILLIGRAM DAILY;
     Route: 062
     Dates: start: 20150717
  3. CILOSTAZOL. [Concomitant]
     Active Substance: CILOSTAZOL
     Indication: CEREBRAL INFARCTION
     Dosage: 200 MILLIGRAM DAILY;
     Route: 048
     Dates: end: 20150817
  4. VERAPAMIL HCL [Concomitant]
     Active Substance: VERAPAMIL HYDROCHLORIDE
     Indication: BREAKTHROUGH PAIN
     Route: 054
     Dates: start: 20150712, end: 20150818
  5. CELECOX [Concomitant]
     Active Substance: CELECOXIB
     Indication: CANCER PAIN
     Route: 048
     Dates: start: 20150708, end: 20150817
  6. MEILAX [Concomitant]
     Active Substance: ETHYL LOFLAZEPATE
     Indication: SLEEP DISORDER
     Dosage: 1 MILLIGRAM DAILY;
     Route: 048
     Dates: end: 20150815
  7. E-FEN BUCCAL [Suspect]
     Active Substance: FENTANYL CITRATE
     Dosage: 100 MICROGRAM DAILY;
     Route: 002
     Dates: start: 20150727, end: 20150818
  8. FENTOS [Concomitant]
     Active Substance: FENTANYL
     Indication: CANCER PAIN
     Dosage: 2 MILLIGRAM DAILY;
     Route: 062
     Dates: start: 20150712, end: 20150716
  9. CRESTOR [Concomitant]
     Active Substance: ROSUVASTATIN CALCIUM
     Indication: DYSLIPIDAEMIA
     Dosage: 2.5 MILLIGRAM DAILY;
     Route: 048
     Dates: end: 20150815
  10. LENDORMIN [Concomitant]
     Active Substance: BROTIZOLAM
     Indication: SLEEP DISORDER
     Dosage: .25 MILLIGRAM DAILY;
     Route: 048
     Dates: end: 20150817
  11. E-FEN BUCCAL [Suspect]
     Active Substance: FENTANYL CITRATE
     Dosage: 0 MICROGRAM - 300 MICROGRAM
     Route: 002
     Dates: start: 20150719, end: 20150726
  12. LOSARTAN K [Concomitant]
     Indication: HYPERTENSION
     Dosage: 50 MILLIGRAM DAILY;
     Route: 048
     Dates: end: 20150815
  13. ETIZOLAM [Concomitant]
     Active Substance: ETIZOLAM
     Indication: SLEEP DISORDER
     Dosage: .5 MILLIGRAM DAILY;
     Route: 048
     Dates: end: 20150817
  14. MAGMITT [Concomitant]
     Active Substance: MAGNESIUM OXIDE
     Indication: CONSTIPATION
     Dosage: 660 MILLIGRAM DAILY;
     Route: 048
     Dates: end: 20150817
  15. CARBAZOCHROME [Concomitant]
     Active Substance: CARBAZOCHROME
     Indication: HAEMATURIA
     Dosage: 90 MILLIGRAM DAILY;
     Route: 048
     Dates: end: 20150817
  16. CINAL [Concomitant]
     Active Substance: ASCORBIC ACID\CALCIUM PANTOTHENATE
     Indication: VITAMIN C DEFICIENCY
     Dosage: 600 MILLIGRAM DAILY;
     Route: 048
     Dates: end: 20150817

REACTIONS (2)
  - Sleep disorder [Not Recovered/Not Resolved]
  - Prostate cancer [Fatal]

NARRATIVE: CASE EVENT DATE: 20150818
